FAERS Safety Report 7801799-4 (Version None)
Quarter: 2011Q4

REPORT INFORMATION
  Report Type: 
  Country: None (occurrence: None)
  Receive Date: 20111007
  Receipt Date: 20111001
  Transmission Date: 20120403
  Serious: Yes (Other)
  Sender: FDA-Public Use
  Company Number: US-PFIZER INC-2011234555

PATIENT
  Sex: Male
  Weight: 68.934 kg

DRUGS (3)
  1. TEGRETOL [Concomitant]
     Dosage: 25 MG, 1X/DAY
  2. IBUPROFEN [Concomitant]
     Indication: OSTEOARTHRITIS
     Dosage: 200 MG, AS NEEDED
  3. VIAGRA [Suspect]
     Dosage: 100 MG, AS NEEDED
     Route: 048
     Dates: start: 20110901

REACTIONS (2)
  - PENILE SWELLING [None]
  - PHIMOSIS [None]
